FAERS Safety Report 14701282 (Version 2)
Quarter: 2018Q2

REPORT INFORMATION
  Report Type: Spontaneous
  Country: US (occurrence: US)
  Receive Date: 20180330
  Receipt Date: 20180405
  Transmission Date: 20180711
  Serious: Yes (Death, Hospitalization, Other)
  Sender: FDA-Public Use
  Company Number: US-GILEAD-2018-0330127

PATIENT
  Age: 65 Year
  Sex: Male

DRUGS (2)
  1. VOSEVI [Suspect]
     Active Substance: SOFOSBUVIR\VELPATASVIR\VOXILAPREVIR
     Indication: PRODUCT USED FOR UNKNOWN INDICATION
     Dosage: UNK DOSE INADVERTENTLY GIVEN INSTEAD OF EPCLUSA, ON FIRST REFILL/ THE SECOND 28 DAYS OF THERAPY
     Route: 065
  2. EPCLUSA [Suspect]
     Active Substance: SOFOSBUVIR\VELPATASVIR
     Indication: HEPATITIS C
     Dosage: UNK DOSE FOR FIRST 28 DAYS OF THERAPY
     Route: 065

REACTIONS (2)
  - Drug dispensing error [Fatal]
  - Death [Fatal]
